FAERS Safety Report 9409659 (Version 1)
Quarter: 2013Q3

REPORT INFORMATION
  Report Type: Report from Study
  Country: FR (occurrence: FR)
  Receive Date: 20130719
  Receipt Date: 20130719
  Transmission Date: 20140515
  Serious: Yes (Hospitalization)
  Sender: FDA-Public Use
  Company Number: FR-ROCHE-1246609

PATIENT
  Age: 64 Year
  Sex: Female
  Weight: 67 kg

DRUGS (20)
  1. TOCILIZUMAB [Suspect]
     Indication: RHEUMATOID ARTHRITIS
     Dosage: DOSE ADMINISTERED: 536 MG
     Route: 041
     Dates: start: 20110223, end: 20110223
  2. CORTANCYL [Concomitant]
     Indication: RHEUMATOID ARTHRITIS
     Route: 065
     Dates: start: 2000
  3. CORTANCYL [Concomitant]
     Route: 065
     Dates: start: 20110223
  4. CORTANCYL [Concomitant]
     Route: 065
     Dates: start: 20110531
  5. CORTANCYL [Concomitant]
     Route: 065
     Dates: start: 20111117
  6. CORTANCYL [Concomitant]
     Route: 065
     Dates: start: 20120830
  7. PLAQUENIL [Concomitant]
     Indication: RHEUMATOID ARTHRITIS
     Route: 065
  8. PLAQUENIL [Concomitant]
     Route: 065
     Dates: start: 20110223
  9. PLAQUENIL [Concomitant]
     Route: 065
     Dates: start: 20120531
  10. PLAQUENIL [Concomitant]
     Route: 065
     Dates: start: 20111117
  11. PLAQUENIL [Concomitant]
     Route: 065
     Dates: start: 20120830
  12. METHOTREXATE [Concomitant]
     Indication: RHEUMATOID ARTHRITIS
     Dosage: ON 31/MAY/2011, METHOTREXATE WAS STOPPED DUE TO ADVERSE EVENT.
     Route: 065
     Dates: end: 20110531
  13. METHOTREXATE [Concomitant]
     Route: 065
     Dates: start: 20111117
  14. METHOTREXATE [Concomitant]
     Route: 065
     Dates: start: 20120830
  15. ADROVANCE [Concomitant]
     Route: 065
     Dates: start: 20110531
  16. APROVEL [Concomitant]
     Route: 065
     Dates: start: 20110531
  17. REVOLADE [Concomitant]
     Route: 065
     Dates: start: 20111117
  18. ABATACEPT [Concomitant]
     Route: 065
     Dates: start: 20120830
  19. SPECIAFOLDINE [Concomitant]
     Route: 065
     Dates: start: 20120830
  20. FOSAVANCE [Concomitant]
     Route: 065
     Dates: start: 20120830

REACTIONS (5)
  - Immune thrombocytopenic purpura [Not Recovered/Not Resolved]
  - Staphylococcal sepsis [Recovered/Resolved]
  - Haematoma [Recovered/Resolved]
  - Thrombocytopenia [Recovered/Resolved with Sequelae]
  - Thrombocytopenia [Not Recovered/Not Resolved]
